FAERS Safety Report 20979545 (Version 2)
Quarter: 2022Q2

REPORT INFORMATION
  Report Type: Other
  Country: JP (occurrence: JP)
  Receive Date: 20220620
  Receipt Date: 20220620
  Transmission Date: 20220721
  Serious: Yes (Death)
  Sender: FDA-Public Use
  Company Number: JP-CHUGAI-2022022219

PATIENT
  Age: 67 Year
  Sex: Female

DRUGS (8)
  1. AVASTIN [Suspect]
     Active Substance: BEVACIZUMAB
     Indication: Carcinoid tumour in the large intestine
     Route: 041
  2. AVASTIN [Suspect]
     Active Substance: BEVACIZUMAB
     Indication: Appendix cancer
  3. OXALIPLATIN [Concomitant]
     Active Substance: OXALIPLATIN
     Indication: Carcinoid tumour in the large intestine
     Route: 041
  4. OXALIPLATIN [Concomitant]
     Active Substance: OXALIPLATIN
     Indication: Appendix cancer
  5. FLUOROURACIL [Concomitant]
     Active Substance: FLUOROURACIL
     Indication: Carcinoid tumour in the large intestine
     Route: 040
  6. FLUOROURACIL [Concomitant]
     Active Substance: FLUOROURACIL
     Indication: Appendix cancer
     Dosage: UNK
     Route: 041
  7. LEVOLEUCOVORIN CALCIUM [Concomitant]
     Active Substance: LEVOLEUCOVORIN CALCIUM
     Indication: Carcinoid tumour in the large intestine
     Route: 041
  8. LEVOLEUCOVORIN CALCIUM [Concomitant]
     Active Substance: LEVOLEUCOVORIN CALCIUM
     Indication: Appendix cancer

REACTIONS (2)
  - Disease progression [Fatal]
  - Off label use [Unknown]
